FAERS Safety Report 9157892 (Version 3)
Quarter: 2014Q1

REPORT INFORMATION
  Report Type: Spontaneous
  Country: US (occurrence: US)
  Receive Date: 20130312
  Receipt Date: 20140218
  Transmission Date: 20141002
  Serious: No
  Sender: FDA-Public Use
  Company Number: US-009507513-1303USA002929

PATIENT
  Age: 55 Year
  Sex: Male

DRUGS (3)
  1. DULERA [Suspect]
     Indication: ASTHMA
     Dosage: TWO PUFFS BY MOUTH TWICE A DAY
     Route: 055
     Dates: start: 2014
  2. DULERA [Suspect]
     Dosage: TWO PUFFS TWICE DAILY
     Route: 055
     Dates: start: 201203
  3. DULERA [Suspect]
     Dosage: TWO PUFFS BY MOUTH TWICE A DAY
     Route: 055
     Dates: start: 201108

REACTIONS (7)
  - Dyspnoea [Not Recovered/Not Resolved]
  - Drug dose omission [Unknown]
  - Product quality issue [Unknown]
  - Drug dose omission [Unknown]
  - Product quality issue [Unknown]
  - Drug dose omission [Unknown]
  - Product quality issue [Unknown]
